FAERS Safety Report 12637693 (Version 1)
Quarter: 2016Q3

REPORT INFORMATION
  Report Type: Spontaneous
  Country: US (occurrence: US)
  Receive Date: 20160809
  Receipt Date: 20160809
  Transmission Date: 20161109
  Serious: No
  Sender: FDA-Public Use
  Company Number: US-ABBVIE-16P-163-1557047-00

PATIENT
  Age: 32 Year
  Sex: Female
  Weight: 83.99 kg

DRUGS (10)
  1. LYRICA [Suspect]
     Active Substance: PREGABALIN
     Dosage: AT BEDTIME
     Route: 048
     Dates: start: 2016
  2. GABAPENTIN. [Suspect]
     Active Substance: GABAPENTIN
     Indication: FIBROMYALGIA
     Route: 048
     Dates: start: 20160101, end: 20160129
  3. XANAX [Concomitant]
     Active Substance: ALPRAZOLAM
     Indication: ANXIETY DISORDER
     Route: 048
     Dates: start: 2000
  4. DEPAKOTE [Suspect]
     Active Substance: DIVALPROEX SODIUM
     Indication: DEPRESSION
     Dosage: AT BEDTIME
     Route: 048
     Dates: start: 2008, end: 201505
  5. TRILEPTAL [Concomitant]
     Active Substance: OXCARBAZEPINE
     Indication: AFFECTIVE DISORDER
     Dosage: QHS
     Route: 048
     Dates: start: 2008
  6. NIRVAM [Concomitant]
     Indication: ANXIETY
     Dosage: ODT (DISOLVING)
     Route: 048
     Dates: start: 2008
  7. LYRICA [Suspect]
     Active Substance: PREGABALIN
     Indication: FIBROMYALGIA
     Dosage: AT BEDTIME
     Route: 048
     Dates: start: 201505, end: 201601
  8. VALIUM [Concomitant]
     Active Substance: DIAZEPAM
     Indication: ANXIETY DISORDER
  9. VALIUM [Concomitant]
     Active Substance: DIAZEPAM
     Indication: POST-TRAUMATIC STRESS DISORDER
     Route: 048
     Dates: start: 2008
  10. AMBIEN [Concomitant]
     Active Substance: ZOLPIDEM TARTRATE
     Indication: INSOMNIA
     Dosage: QHS
     Dates: start: 2008, end: 201507

REACTIONS (19)
  - Bedridden [Recovered/Resolved]
  - Paraesthesia [Recovered/Resolved]
  - Gastrooesophageal reflux disease [Not Recovered/Not Resolved]
  - Mobility decreased [Recovered/Resolved]
  - Weight increased [Unknown]
  - Fibromyalgia [Unknown]
  - Hypertension [Not Recovered/Not Resolved]
  - Dyspepsia [Not Recovered/Not Resolved]
  - Pain [Recovered/Resolved]
  - Movement disorder [Recovered/Resolved]
  - Amnesia [Not Recovered/Not Resolved]
  - Drug dose omission [Recovered/Resolved]
  - Hypoaesthesia [Recovered/Resolved]
  - Weight increased [Recovered/Resolved]
  - Feeling hot [Recovered/Resolved]
  - Depression [Recovered/Resolved]
  - Somnolence [Not Recovered/Not Resolved]
  - Drug ineffective [Unknown]
  - Fibromyalgia [Unknown]

NARRATIVE: CASE EVENT DATE: 2008
